FAERS Safety Report 9733407 (Version 1)
Quarter: 2013Q4

REPORT INFORMATION
  Report Type: Spontaneous
  Country: JP (occurrence: JP)
  Receive Date: 20131205
  Receipt Date: 20131205
  Transmission Date: 20140711
  Serious: Yes (Other)
  Sender: FDA-Public Use
  Company Number: JP-ACTAVIS-2013-22210

PATIENT
  Age: 69 Year
  Sex: Male
  Weight: 72 kg

DRUGS (4)
  1. GEMCITABINE (UNKNOWN) [Suspect]
     Indication: BLADDER CANCER RECURRENT
     Dosage: 1000 MG/M2 *3, FIVE COURSES
     Route: 065
     Dates: start: 200909, end: 201007
  2. GEMCITABINE (UNKNOWN) [Suspect]
     Indication: METASTASES TO LYMPH NODES
  3. CISPLATIN (UNKNOWN) [Suspect]
     Indication: BLADDER CANCER RECURRENT
     Dosage: 70 MG/M2*1 , FIVE COURSES
     Route: 065
     Dates: start: 200909, end: 201007
  4. CISPLATIN (UNKNOWN) [Suspect]
     Indication: METASTASES TO LYMPH NODES

REACTIONS (8)
  - Neutropenia [Unknown]
  - Haemoglobin decreased [Unknown]
  - Leukopenia [Unknown]
  - Thrombocytopenia [Unknown]
  - Pyrexia [Unknown]
  - Stomatitis [Unknown]
  - Nausea [Unknown]
  - Vomiting [Unknown]
